FAERS Safety Report 21633283 (Version 12)
Quarter: 2025Q1

REPORT INFORMATION
  Report Type: Report from Study
  Country: BR (occurrence: BR)
  Receive Date: 20221123
  Receipt Date: 20250115
  Transmission Date: 20250409
  Serious: Yes (Hospitalization, Other)
  Sender: GLAXOSMITHKLINE
  Company Number: BR-GLAXOSMITHKLINE-BR2022AMR170828

PATIENT

DRUGS (6)
  1. BELIMUMAB [Suspect]
     Active Substance: BELIMUMAB
     Indication: Systemic lupus erythematosus
     Dosage: UNK, MO (5X120 MG)
     Route: 042
     Dates: start: 202209
  2. BELIMUMAB [Suspect]
     Active Substance: BELIMUMAB
     Route: 042
     Dates: start: 20220803
  3. BELIMUMAB [Suspect]
     Active Substance: BELIMUMAB
     Dosage: 600 MG, Q4W (5X120 MG)
     Route: 042
  4. BELIMUMAB [Suspect]
     Active Substance: BELIMUMAB
     Route: 042
  5. CHLOROQUINE [Concomitant]
     Active Substance: CHLOROQUINE
     Indication: Product used for unknown indication
     Dosage: 40 MG, QD
  6. CHLOROQUINE [Concomitant]
     Active Substance: CHLOROQUINE
     Dosage: 400 MG, QD

REACTIONS (7)
  - Pneumonia [Recovered/Resolved]
  - Pain [Recovered/Resolved]
  - Systemic lupus erythematosus [Unknown]
  - Herpes zoster [Recovered/Resolved]
  - Eye inflammation [Recovered/Resolved]
  - Inappropriate schedule of product administration [Unknown]
  - Product dose omission issue [Unknown]

NARRATIVE: CASE EVENT DATE: 20230701
